FAERS Safety Report 20723365 (Version 2)
Quarter: 2022Q2

REPORT INFORMATION
  Report Type: Spontaneous
  Country: JP (occurrence: JP)
  Receive Date: 20220419
  Receipt Date: 20220425
  Transmission Date: 20220720
  Serious: No
  Sender: FDA-Public Use
  Company Number: JP-UCBSA-2022018557

PATIENT

DRUGS (1)
  1. NEUPRO [Suspect]
     Active Substance: ROTIGOTINE
     Indication: Product used for unknown indication
     Dosage: 4MG DAILY
     Route: 062

REACTIONS (3)
  - Product adhesion issue [Unknown]
  - Drug dose titration not performed [Unknown]
  - No adverse event [Unknown]
